FAERS Safety Report 11574477 (Version 1)
Quarter: 2015Q3

REPORT INFORMATION
  Report Type: Spontaneous
  Country: DE (occurrence: DE)
  Receive Date: 20150930
  Receipt Date: 20150930
  Transmission Date: 20151125
  Serious: Yes (Congenital Anomaly)
  Sender: FDA-Public Use
  Company Number: DE-SUN PHARMACEUTICAL INDUSTRIES LTD-2015R1-103643

PATIENT
  Age: 1 Day
  Sex: Female
  Weight: 3.53 kg

DRUGS (8)
  1. QUILONUM RETARD [Concomitant]
     Active Substance: LITHIUM CARBONATE
     Indication: MANIA
     Dosage: 2250 MG/DAY TO 450 MG/DAY
     Route: 064
     Dates: start: 20140225, end: 20140725
  2. PROTAPHANE [Concomitant]
     Active Substance: INSULIN HUMAN
     Indication: GESTATIONAL DIABETES
     Dosage: UNK
     Route: 064
  3. VALPROIC ACID. [Suspect]
     Active Substance: VALPROIC ACID
     Indication: MANIA
     Dosage: 2300MG/DAY/ VARYING DOSE
     Route: 064
     Dates: start: 20131026, end: 20140725
  4. LITHIUM. [Suspect]
     Active Substance: LITHIUM
     Indication: MANIA
     Dosage: 900 MG, DAILY
     Route: 064
     Dates: start: 20140107, end: 20140224
  5. QUETIAPINE [Concomitant]
     Active Substance: QUETIAPINE
     Indication: MANIA
     Dosage: 100[MG/D] SELDOM, IF REQUIRED. 50 OR 100 MG/D. ONCE IN 38+4 (24.7)
     Route: 064
     Dates: start: 20131026, end: 20140724
  6. L-THYROXINE [Concomitant]
     Active Substance: LEVOTHYROXINE
     Indication: HYPOTHYROIDISM
     Dosage: 50 ?G, QD
     Route: 064
     Dates: start: 20140102, end: 20140627
  7. SEROQUEL [Suspect]
     Active Substance: QUETIAPINE FUMARATE
     Indication: MANIA
     Dosage: 200 MG, QD
     Route: 064
     Dates: start: 20140102, end: 20140725
  8. NOVORAPID [Concomitant]
     Active Substance: INSULIN ASPART
     Indication: GESTATIONAL DIABETES
     Dosage: UNK
     Route: 064

REACTIONS (3)
  - Atrial septal defect [Unknown]
  - Ventricular septal defect [Unknown]
  - Dysmorphism [Unknown]

NARRATIVE: CASE EVENT DATE: 20140725
